FAERS Safety Report 25860435 (Version 1)
Quarter: 2025Q3

REPORT INFORMATION
  Report Type: Spontaneous
  Country: EU (occurrence: EU)
  Receive Date: 20250929
  Receipt Date: 20250929
  Transmission Date: 20251021
  Serious: Yes (Life-Threatening)
  Sender: MYLAN
  Company Number: None

PATIENT
  Age: 53 Year
  Sex: Female
  Weight: 70 kg

DRUGS (28)
  1. DEXAMETHASONE [Suspect]
     Active Substance: DEXAMETHASONE
     Indication: General anaesthesia
     Dates: start: 20241120, end: 20241120
  2. DEXAMETHASONE [Suspect]
     Active Substance: DEXAMETHASONE
     Route: 042
     Dates: start: 20241120, end: 20241120
  3. DEXAMETHASONE [Suspect]
     Active Substance: DEXAMETHASONE
     Route: 042
     Dates: start: 20241120, end: 20241120
  4. DEXAMETHASONE [Suspect]
     Active Substance: DEXAMETHASONE
     Dates: start: 20241120, end: 20241120
  5. KETAMINE [Suspect]
     Active Substance: KETAMINE
     Indication: General anaesthesia
     Dates: start: 20241120, end: 20241120
  6. KETAMINE [Suspect]
     Active Substance: KETAMINE
     Route: 042
     Dates: start: 20241120, end: 20241120
  7. KETAMINE [Suspect]
     Active Substance: KETAMINE
     Route: 042
     Dates: start: 20241120, end: 20241120
  8. KETAMINE [Suspect]
     Active Substance: KETAMINE
     Dates: start: 20241120, end: 20241120
  9. SUFENTANIL [Suspect]
     Active Substance: SUFENTANIL
     Indication: General anaesthesia
     Dates: start: 20241120, end: 20241120
  10. SUFENTANIL [Suspect]
     Active Substance: SUFENTANIL
     Route: 042
     Dates: start: 20241120, end: 20241120
  11. SUFENTANIL [Suspect]
     Active Substance: SUFENTANIL
     Route: 042
     Dates: start: 20241120, end: 20241120
  12. SUFENTANIL [Suspect]
     Active Substance: SUFENTANIL
     Dates: start: 20241120, end: 20241120
  13. PROPOFOL [Suspect]
     Active Substance: PROPOFOL
     Indication: General anaesthesia
     Dates: start: 20241120, end: 20241120
  14. PROPOFOL [Suspect]
     Active Substance: PROPOFOL
     Route: 042
     Dates: start: 20241120, end: 20241120
  15. PROPOFOL [Suspect]
     Active Substance: PROPOFOL
     Route: 042
     Dates: start: 20241120, end: 20241120
  16. PROPOFOL [Suspect]
     Active Substance: PROPOFOL
     Dates: start: 20241120, end: 20241120
  17. ATRACURIUM [Suspect]
     Active Substance: ATRACURIUM
     Indication: General anaesthesia
     Dates: start: 20241120, end: 20241120
  18. ATRACURIUM [Suspect]
     Active Substance: ATRACURIUM
     Route: 042
     Dates: start: 20241120, end: 20241120
  19. ATRACURIUM [Suspect]
     Active Substance: ATRACURIUM
     Route: 042
     Dates: start: 20241120, end: 20241120
  20. ATRACURIUM [Suspect]
     Active Substance: ATRACURIUM
     Dates: start: 20241120, end: 20241120
  21. CEFAZOLIN [Suspect]
     Active Substance: CEFAZOLIN
     Indication: Antibiotic prophylaxis
     Dates: start: 20241120, end: 20241120
  22. CEFAZOLIN [Suspect]
     Active Substance: CEFAZOLIN
     Route: 042
     Dates: start: 20241120, end: 20241120
  23. CEFAZOLIN [Suspect]
     Active Substance: CEFAZOLIN
     Route: 042
     Dates: start: 20241120, end: 20241120
  24. CEFAZOLIN [Suspect]
     Active Substance: CEFAZOLIN
     Dates: start: 20241120, end: 20241120
  25. LIDOCAINE HYDROCHLORIDE [Suspect]
     Active Substance: LIDOCAINE HYDROCHLORIDE
     Indication: Product used for unknown indication
     Dates: start: 20241120, end: 20241120
  26. LIDOCAINE HYDROCHLORIDE [Suspect]
     Active Substance: LIDOCAINE HYDROCHLORIDE
     Route: 065
     Dates: start: 20241120, end: 20241120
  27. LIDOCAINE HYDROCHLORIDE [Suspect]
     Active Substance: LIDOCAINE HYDROCHLORIDE
     Route: 065
     Dates: start: 20241120, end: 20241120
  28. LIDOCAINE HYDROCHLORIDE [Suspect]
     Active Substance: LIDOCAINE HYDROCHLORIDE
     Dates: start: 20241120, end: 20241120

REACTIONS (2)
  - Circulatory collapse [Recovered/Resolved]
  - Bronchospasm [Recovered/Resolved]

NARRATIVE: CASE EVENT DATE: 20241120
